FAERS Safety Report 8502583-9 (Version None)
Quarter: 2012Q3

REPORT INFORMATION
  Report Type: 
  Country: None (occurrence: None)
  Receive Date: 20120702
  Receipt Date: 20120621
  Transmission Date: 20120928
  Serious: Yes (Other)
  Sender: FDA-Public Use
  Company Number: 1206-335

PATIENT
  Age: 83 Year
  Sex: Female
  Weight: 58.0604 kg

DRUGS (6)
  1. PRESERVISION (PRESERVISION LUTEIN EYE VITA. +MIN. SUP. SOFTG.) [Concomitant]
  2. EYLEA [Suspect]
     Indication: MACULAR DEGENERATION
     Dosage: INTRAVITREAL
     Dates: start: 20120501
  3. VYTORIN [Concomitant]
  4. HYDROCHLOROTHIAZIDE (HCTZ) (HYDROCHLOROTHIAZIDE) [Concomitant]
  5. OTC CALCIUM (CALCIUM) [Concomitant]
  6. METOPROLOL TARTRATE [Concomitant]

REACTIONS (1)
  - MUSCLE RUPTURE [None]
